FAERS Safety Report 20304818 (Version 1)
Quarter: 2022Q1

REPORT INFORMATION
  Report Type: Spontaneous
  Country: DE (occurrence: DE)
  Receive Date: 20220106
  Receipt Date: 20220106
  Transmission Date: 20220424
  Serious: Yes (Hospitalization)
  Sender: FDA-Public Use
  Company Number: DE-ADRED-07702-01

PATIENT
  Age: 91 Year
  Sex: Female

DRUGS (13)
  1. CANDESARTAN [Suspect]
     Active Substance: CANDESARTAN
     Indication: Product used for unknown indication
     Dosage: 16 MILLIGRAM, QD, (16 MG, 1-0-0-0)
  2. TORSEMIDE [Suspect]
     Active Substance: TORSEMIDE
     Indication: Product used for unknown indication
     Dosage: 200 MILLIGRAM, SCHEMA
  3. POTASSIUM CHLORIDE [Suspect]
     Active Substance: POTASSIUM CHLORIDE
     Indication: Product used for unknown indication
     Dosage: UNK, SCHEMA
     Route: 048
  4. METOPROLOL [Concomitant]
     Active Substance: METOPROLOL
     Dosage: 47.5 MILLIGRAM, QD, (47.5 MG, 1-0-0-0)
  5. NALOXONE HYDROCHLORIDE\OXYCODONE HYDROCHLORIDE [Concomitant]
     Active Substance: NALOXONE HYDROCHLORIDE\OXYCODONE HYDROCHLORIDE
     Dosage: UNK, (5|2.5 MG, 2-0-1-0)
  6. MELPERONE [Concomitant]
     Active Substance: MELPERONE
     Dosage: 25 MILLIGRAM, QD,(25 MG, 0-0-0-1)
  7. POLYETHYLENE GLYCOL\POTASSIUM CHLORIDE\SODIUM BICARBONATE\SODIUM CHLOR [Concomitant]
     Active Substance: POLYETHYLENE GLYCOL\POTASSIUM CHLORIDE\SODIUM BICARBONATE\SODIUM CHLORIDE
     Dosage: UNK UNK, QD, 1-0-0-0
  8. FENOTEROL [Concomitant]
     Active Substance: FENOTEROL
     Dosage: UNK, (BEDARF, DOSIERAEROSOL)
  9. AMLODIPINE BESYLATE [Concomitant]
     Active Substance: AMLODIPINE BESYLATE
     Dosage: 5 MILLIGRAM, (5 MG, 0.5-0-1-0)
  10. NITROGLYCERIN [Concomitant]
     Active Substance: NITROGLYCERIN
     Dosage: UNK, (BEDARF)
  11. LEVOTHYROXINE SODIUM [Concomitant]
     Active Substance: LEVOTHYROXINE SODIUM
     Dosage: 75 MICROGRAM, QD, (75 ?G, 1-0-0-0)
  12. FOLIC ACID [Concomitant]
     Active Substance: FOLIC ACID
     Dosage: 0.4 MILLIGRAM, QD, (0.4 MG, 1-0-0-0)
  13. PHENPROCOUMON [Concomitant]
     Active Substance: PHENPROCOUMON
     Dosage: UNK, (SCHEMA)

REACTIONS (16)
  - Electrocardiogram abnormal [Unknown]
  - Coronavirus test positive [Unknown]
  - Atrial fibrillation [Unknown]
  - General physical health deterioration [Unknown]
  - Dehydration [Unknown]
  - Metabolic acidosis [Unknown]
  - Fall [Unknown]
  - Disorientation [Unknown]
  - Oedema peripheral [Unknown]
  - Systemic infection [Unknown]
  - Musculoskeletal pain [Unknown]
  - Diarrhoea [Unknown]
  - Hyperkalaemia [Unknown]
  - Renal impairment [Unknown]
  - Hypotension [Unknown]
  - Hyponatraemia [Unknown]
